FAERS Safety Report 6031763-X (Version None)
Quarter: 2009Q1

REPORT INFORMATION
  Report Type: 
  Country: None (occurrence: None)
  Receive Date: 20090108
  Receipt Date: 20090105
  Transmission Date: 20090719
  Serious: Yes (Hospitalization)
  Sender: FDA-Public Use
  Company Number: US-MERCK-0901USA00140

PATIENT
  Age: 54 Year
  Sex: Male

DRUGS (3)
  1. JANUVIA [Suspect]
     Indication: TYPE 2 DIABETES MELLITUS
     Route: 048
     Dates: start: 20080301, end: 20080701
  2. METFORMIN [Concomitant]
     Route: 065
  3. LANTUS [Concomitant]
     Route: 065

REACTIONS (2)
  - INFLUENZA LIKE ILLNESS [None]
  - PANCREATITIS [None]
